FAERS Safety Report 14176842 (Version 2)
Quarter: 2018Q1

REPORT INFORMATION
  Report Type: Other
  Country: GB (occurrence: GB)
  Receive Date: 20171110
  Receipt Date: 20180309
  Transmission Date: 20180508
  Serious: Yes (Other)
  Sender: FDA-Public Use
  Company Number: GB-VELOXIS PHARMACEUTICALS-2033783

PATIENT
  Sex: Female
  Weight: 2.5 kg

DRUGS (6)
  1. HEPARIN SODIUM. [Suspect]
     Active Substance: HEPARIN SODIUM
  2. ENVARSUS XR [Suspect]
     Active Substance: TACROLIMUS
     Indication: FOETAL EXPOSURE DURING PREGNANCY
     Route: 064
  3. PREDNISONE. [Suspect]
     Active Substance: PREDNISONE
  4. AZATHIOPRINE. [Suspect]
     Active Substance: AZATHIOPRINE
     Route: 064
  5. PREDNISONE. [Suspect]
     Active Substance: PREDNISONE
     Route: 065
  6. STEROIDS [Suspect]
     Active Substance: UNSPECIFIED INGREDIENT
     Route: 064

REACTIONS (2)
  - Low birth weight baby [Unknown]
  - Foetal exposure during pregnancy [Unknown]
